FAERS Safety Report 16222430 (Version 1)
Quarter: 2019Q2

REPORT INFORMATION
  Report Type: Spontaneous
  Country: US (occurrence: US)
  Receive Date: 20190419
  Receipt Date: 20190419
  Transmission Date: 20190711
  Serious: Yes (Hospitalization)
  Sender: FDA-Public Use
  Company Number: None

PATIENT
  Sex: Female

DRUGS (5)
  1. LORAZEPAM. [Concomitant]
     Active Substance: LORAZEPAM
  2. OMEPRAZOLE. [Concomitant]
     Active Substance: OMEPRAZOLE
  3. SUCRALFATE. [Concomitant]
     Active Substance: SUCRALFATE
  4. POT CHLORIDE [Concomitant]
     Active Substance: POTASSIUM CHLORIDE
  5. DOFETILIDE. [Suspect]
     Active Substance: DOFETILIDE
     Indication: CARDIAC DISORDER
     Route: 048
     Dates: start: 20190204

REACTIONS (1)
  - Hospitalisation [None]
